FAERS Safety Report 6650563-0 (Version None)
Quarter: 2010Q1

REPORT INFORMATION
  Report Type: 
  Country: None (occurrence: None)
  Receive Date: 20100325
  Receipt Date: 20100308
  Transmission Date: 20100710
  Serious: No
  Sender: FDA-Public Use
  Company Number: US-BIOGENIDEC-2010BI007586

PATIENT
  Age: 52 Year
  Sex: Female

DRUGS (1)
  1. AVONEX [Suspect]
     Indication: MULTIPLE SCLEROSIS
     Route: 030
     Dates: start: 20000101

REACTIONS (5)
  - ABDOMINAL DISCOMFORT [None]
  - ARTHRITIS [None]
  - BALANCE DISORDER [None]
  - GAIT DISTURBANCE [None]
  - MUSCLE SPASTICITY [None]
